FAERS Safety Report 10678626 (Version 1)
Quarter: 2014Q4

REPORT INFORMATION
  Report Type: Spontaneous
  Country: IT (occurrence: IT)
  Receive Date: 20141229
  Receipt Date: 20141229
  Transmission Date: 20150529
  Serious: Yes (Other)
  Sender: FDA-Public Use
  Company Number: IT-TEVA-530853ISR

PATIENT
  Age: 66 Year
  Sex: Female
  Weight: 68 kg

DRUGS (2)
  1. FLUOROURACILE TEVA [Suspect]
     Active Substance: FLUOROURACIL
     Indication: OVARIAN CANCER
     Route: 042
     Dates: start: 20141216, end: 20141216
  2. OXALIPLATINO TEVA [Suspect]
     Active Substance: OXALIPLATIN
     Indication: OVARIAN CANCER
     Route: 042
     Dates: start: 20141202, end: 20141216

REACTIONS (3)
  - Paraesthesia [Recovered/Resolved]
  - Dyspnoea [Recovered/Resolved]
  - Off label use [Unknown]

NARRATIVE: CASE EVENT DATE: 20141216
